FAERS Safety Report 16218715 (Version 3)
Quarter: 2021Q2

REPORT INFORMATION
  Report Type: Spontaneous
  Country: US (occurrence: US)
  Receive Date: 20190419
  Receipt Date: 20210609
  Transmission Date: 20210716
  Serious: Yes (Disabling, Other)
  Sender: FDA-Public Use
  Company Number: US-TEVA-2019-US-1033093

PATIENT
  Age: 60 Year
  Sex: Female
  Weight: 68.94 kg

DRUGS (15)
  1. TRASTUZUMAB. [Suspect]
     Active Substance: TRASTUZUMAB
     Indication: BREAST CANCER FEMALE
     Dosage: NUMBER OF CYCLE?06, FREQUENCY?EVERY THREE WEEKS, DOSE?484 MG; X1 YEAR
     Route: 042
     Dates: start: 20150108, end: 20151224
  2. DOCETAXEL?SANDOZ [Suspect]
     Active Substance: DOCETAXEL
     Indication: BREAST CANCER FEMALE
     Dosage: NUMBER OF CYCLE?06, FREQUENCY?EVERY THREE WEEKS, DOSE?100 MG; 160MG/16ML (10MG/ML)?MULTI DOSE VIAL
     Route: 042
     Dates: start: 20150108, end: 20150430
  3. LEVAQUIN [Concomitant]
     Active Substance: LEVOFLOXACIN
     Route: 065
  4. SPIRONOLACTONE. [Concomitant]
     Active Substance: SPIRONOLACTONE
     Route: 065
  5. DOCETAXEL SAGENT [Suspect]
     Active Substance: DOCETAXEL
     Indication: BREAST CANCER FEMALE
     Dosage: 7ML (140 MG VIAL); NUMBER OF CYCLE?06, FREQUENCY?EVERY THREE WEEKS, DOSE 100 MG
     Route: 042
     Dates: start: 20150108, end: 20150430
  6. DOCETAXEL?SANOFI [Suspect]
     Active Substance: DOCETAXEL
     Indication: BREAST CANCER FEMALE
     Dosage: NUMBER OF CYCLE?06, FREQUENCY?EVERY THREE WEEKS, DOSE?100 MG; 1ML (20 MG VIAL)
     Route: 042
     Dates: start: 20150108, end: 20150430
  7. DOCETAXEL?SANOFI [Suspect]
     Active Substance: DOCETAXEL
     Dosage: NUMBER OF CYCLE?06, FREQUENCY?EVERY THREE WEEKS, DOSE?100 MG; 4ML (80 MG VIAL) SINGLE DOSE VIAL
     Route: 042
     Dates: start: 20150108, end: 20150430
  8. OMEPRAZOLE. [Concomitant]
     Active Substance: OMEPRAZOLE
     Dosage: DELAYED RELEASE
     Route: 065
  9. PERTUZUMAB. [Suspect]
     Active Substance: PERTUZUMAB
     Indication: BREAST CANCER FEMALE
     Dosage: NUMBER OF CYCLE?06, FREQUENCY?EVERY THREE WEEKS, DOSE?420 MG
     Route: 042
     Dates: start: 20150108, end: 20150430
  10. CARBOPLATIN. [Suspect]
     Active Substance: CARBOPLATIN
     Indication: BREAST CANCER FEMALE
     Dosage: NUMBER OF CYCLE?06, FREQUENCY?EVERY THREE WEEKS, DOSE?600 MG
     Route: 042
     Dates: start: 20150108, end: 20150430
  11. VITAMIN D [Concomitant]
     Active Substance: VITAMIN D NOS
     Route: 065
     Dates: start: 2009
  12. TYLENOL [Concomitant]
     Active Substance: ACETAMINOPHEN
     Route: 065
     Dates: start: 2010
  13. PROCHLORPERAZINE MALEATE. [Concomitant]
     Active Substance: PROCHLORPERAZINE MALEATE
     Route: 065
  14. ONDANSETRON HCL [Concomitant]
     Active Substance: ONDANSETRON HYDROCHLORIDE
     Route: 065
  15. ANASTROZOLE. [Concomitant]
     Active Substance: ANASTROZOLE
     Route: 065

REACTIONS (7)
  - Myalgia [Unknown]
  - Madarosis [Not Recovered/Not Resolved]
  - Hair colour changes [Not Recovered/Not Resolved]
  - Hair texture abnormal [Not Recovered/Not Resolved]
  - Diarrhoea [Recovered/Resolved]
  - Neuropathy peripheral [Recovering/Resolving]
  - Alopecia areata [Not Recovered/Not Resolved]

NARRATIVE: CASE EVENT DATE: 2015
